FAERS Safety Report 8025594-9 (Version None)
Quarter: 2012Q1

REPORT INFORMATION
  Report Type: 
  Country: None (occurrence: None)
  Receive Date: 20120105
  Receipt Date: 20111227
  Transmission Date: 20120608
  Serious: Yes (Other)
  Sender: FDA-Public Use
  Company Number: US-ASTRAZENECA-2011SE47021

PATIENT
  Age: 52 Year
  Sex: Female
  Weight: 72.6 kg

DRUGS (9)
  1. SEROQUEL [Suspect]
     Route: 048
  2. LITHIUM [Concomitant]
     Indication: AFFECTIVE DISORDER
  3. CLONOPIN [Concomitant]
     Indication: BIPOLAR DISORDER
  4. SEROQUEL [Suspect]
     Route: 048
     Dates: end: 20110726
  5. SEROQUEL [Suspect]
     Route: 048
  6. LAMICTAL [Concomitant]
  7. SEROQUEL [Suspect]
     Route: 048
  8. ARIMIDEX [Concomitant]
     Indication: BREAST CANCER
  9. EFFEXOR XR [Concomitant]
     Indication: BIPOLAR DISORDER

REACTIONS (8)
  - SUICIDAL BEHAVIOUR [None]
  - DRUG DOSE OMISSION [None]
  - FEELING DRUNK [None]
  - HEADACHE [None]
  - FEELING ABNORMAL [None]
  - SOMNOLENCE [None]
  - HYPERSOMNIA [None]
  - DRUG DISPENSING ERROR [None]
